FAERS Safety Report 20612746 (Version 2)
Quarter: 2022Q2

REPORT INFORMATION
  Report Type: Spontaneous
  Country: HR (occurrence: HR)
  Receive Date: 20220318
  Receipt Date: 20220408
  Transmission Date: 20220720
  Serious: Yes (Other)
  Sender: FDA-Public Use
  Company Number: HR-TEVA-2022-HR-2010278

PATIENT
  Age: 40 Year
  Sex: Female

DRUGS (1)
  1. AJOVY [Suspect]
     Active Substance: FREMANEZUMAB-VFRM
     Route: 065

REACTIONS (8)
  - Swollen tongue [Unknown]
  - Injection site erythema [Not Recovered/Not Resolved]
  - Injection site oedema [Not Recovered/Not Resolved]
  - Injection site pruritus [Unknown]
  - Dyspnoea [Recovered/Resolved]
  - Panic attack [Unknown]
  - Stress [Unknown]
  - Fear [Unknown]

NARRATIVE: CASE EVENT DATE: 20220210
